FAERS Safety Report 7292620-4 (Version None)
Quarter: 2011Q1

REPORT INFORMATION
  Report Type: 
  Country: None (occurrence: None)
  Receive Date: 20110214
  Receipt Date: 20110214
  Transmission Date: 20110831
  Serious: Yes (Other)
  Sender: FDA-Public Use
  Company Number: None

PATIENT
  Sex: Female

DRUGS (1)
  1. BOCA UITLET ALCOHOL PREPS TRIAD GROUP [Suspect]

REACTIONS (4)
  - VOMITING [None]
  - PULMONARY CONGESTION [None]
  - NAUSEA [None]
  - DYSGEUSIA [None]
